FAERS Safety Report 14969116 (Version 1)
Quarter: 2018Q2

REPORT INFORMATION
  Report Type: Spontaneous
  Country: US (occurrence: US)
  Receive Date: 20180511
  Receipt Date: 20180511
  Transmission Date: 20180711
  Serious: No
  Sender: FDA-Public Use
  Company Number: None

PATIENT
  Sex: Female
  Weight: 83.46 kg

DRUGS (4)
  1. OTREXUP [Suspect]
     Active Substance: METHOTREXATE
     Indication: RHEUMATOID ARTHRITIS
     Route: 058
     Dates: start: 201501
  2. HUMIRA [Suspect]
     Active Substance: ADALIMUMAB
     Route: 058
     Dates: start: 201208
  3. LEUCOVORIN 5MG JAN2013-0NGOING [Concomitant]
  4. DICLOFENAC 1% GEL DEC 2016- ONGOING [Concomitant]

REACTIONS (1)
  - Therapy cessation [None]
